FAERS Safety Report 20622511 (Version 3)
Quarter: 2022Q2

REPORT INFORMATION
  Report Type: Report from Study
  Country: US (occurrence: US)
  Receive Date: 20220322
  Receipt Date: 20220504
  Transmission Date: 20220721
  Serious: No
  Sender: FDA-Public Use
  Company Number: US-NOVARTISTESTPH-NVSC2022US062926

PATIENT
  Age: 59 Year
  Sex: Male
  Weight: 86.18 kg

DRUGS (1)
  1. ENTRESTO [Suspect]
     Active Substance: SACUBITRIL\VALSARTAN
     Indication: Product used for unknown indication
     Dosage: 50 MG,(24/26) QD
     Route: 048
     Dates: start: 20211224

REACTIONS (3)
  - Wrong technique in product usage process [Unknown]
  - Dizziness postural [Unknown]
  - Nasopharyngitis [Unknown]

NARRATIVE: CASE EVENT DATE: 20220429
